FAERS Safety Report 16118094 (Version 1)
Quarter: 2019Q1

REPORT INFORMATION
  Report Type: Spontaneous
  Country: ES (occurrence: ES)
  Receive Date: 20190326
  Receipt Date: 20190326
  Transmission Date: 20190418
  Serious: Yes (Hospitalization)
  Sender: FDA-Public Use
  Company Number: ES-TEVA-2019-ES-1029294

PATIENT
  Age: 75 Year
  Sex: Female

DRUGS (4)
  1. NEOTIGASON 25 MG CAPSULAS, 30 C?PSULAS [Concomitant]
     Dosage: 25 MG/ 24 H
     Route: 048
     Dates: start: 20181228
  2. NEOTIGASON 25 MG CAPSULAS, 30 C?PSULAS [Concomitant]
     Indication: PITYRIASIS RUBRA PILARIS
     Dosage: 25 MG C/24H
     Route: 048
     Dates: start: 20181228
  3. ENALAPRIL (2142A) [Suspect]
     Active Substance: ENALAPRIL
     Indication: HYPERTENSION
     Dosage: 20 MG C/24H
     Route: 048
     Dates: start: 20180806, end: 20181113
  4. ENALAPRIL (2142A) [Suspect]
     Active Substance: ENALAPRIL
     Dosage: 20 MG/ 24 H
     Route: 048
     Dates: start: 201901, end: 20190110

REACTIONS (1)
  - Dermatitis exfoliative generalised [Recovered/Resolved]

NARRATIVE: CASE EVENT DATE: 20190110
